FAERS Safety Report 10066314 (Version 2)
Quarter: 2014Q2

REPORT INFORMATION
  Report Type: Report from Study
  Country: US (occurrence: US)
  Receive Date: 20140408
  Receipt Date: 20140626
  Transmission Date: 20141212
  Serious: Yes (Other)
  Sender: FDA-Public Use
  Company Number: PHEH2014US006723

PATIENT
  Sex: Female

DRUGS (3)
  1. DIOVAN HCT [Suspect]
     Dosage: 0.5 DF, (VALS 320MG, HCTZ 12.5MG)
  2. ANTIBIOTICS [Concomitant]
     Dosage: UNK UKN, UNK
  3. ANALGESICS [Concomitant]
     Dosage: UNK UKN, UNK

REACTIONS (3)
  - Cataract [Unknown]
  - Malaise [Unknown]
  - Wrong technique in drug usage process [Unknown]
